FAERS Safety Report 16214655 (Version 2)
Quarter: 2019Q2

REPORT INFORMATION
  Report Type: Spontaneous
  Country: DE (occurrence: DE)
  Receive Date: 20190418
  Receipt Date: 20190517
  Transmission Date: 20190711
  Serious: Yes (Hospitalization)
  Sender: FDA-Public Use
  Company Number: PHHY2019DE087698

PATIENT
  Sex: Female
  Weight: 59.8 kg

DRUGS (12)
  1. MOXOBETA [Concomitant]
     Active Substance: MOXONIDINE
     Indication: HYPERTENSION
     Dosage: 1 DF, QD (0-0-1)
     Route: 065
  2. TORASEMID 1A PHARMA [Suspect]
     Active Substance: TORSEMIDE
     Indication: CARDIAC FAILURE
     Dosage: 1 DF, QD (1-0-0)
     Route: 065
     Dates: start: 201611
  3. ATORVASTATIN - 1 A PHARMA [Suspect]
     Active Substance: ATORVASTATIN
     Indication: BLOOD CHOLESTEROL DECREASED
     Dosage: 1 DF, QD (0-0-1)
     Route: 065
     Dates: start: 20170706
  4. CORVATON [Concomitant]
     Active Substance: MOLSIDOMINE
     Indication: ANGINA PECTORIS
     Dosage: 2 DF, QD (1-0-1)
     Route: 065
  5. RAMILICH [Concomitant]
     Active Substance: RAMIPRIL
     Indication: HYPERTENSION
     Dosage: 2 DF, QD (1-0-1)
     Route: 065
  6. ISDN AL [Concomitant]
     Indication: ANGINA PECTORIS
     Dosage: 1 DF, QD (1-0-0)
     Route: 065
  7. LAXOBERAL [Concomitant]
     Active Substance: SODIUM PICOSULFATE
     Indication: CONSTIPATION
     Dosage: 7.5 MG, QD (1-0-0 AS NEEDED)
     Route: 065
  8. METOPROLOL RATIOPHARM SUCCINAT [Concomitant]
     Indication: PULSE ABNORMAL
     Dosage: 0.5 DF, QD (0.5-0-0)
     Route: 065
  9. CLOPIDOGREL [Concomitant]
     Active Substance: CLOPIDOGREL BISULFATE
     Indication: ANTICOAGULANT THERAPY
     Dosage: 1 DF, QD (1-0-0)
     Route: 065
  10. NOVAMINSULFON LICHTENSTEIN [Concomitant]
     Active Substance: METAMIZOLE SODIUM
     Indication: PAIN
     Dosage: UNK (AS NEEDED: UP TO 4 X 30 DROPS)
     Route: 065
  11. PANTOPRAZOLE SODIUM. [Suspect]
     Active Substance: PANTOPRAZOLE SODIUM
     Indication: GASTRIC DISORDER
     Dosage: UNK
     Route: 065
     Dates: start: 20170822
  12. LERCANIDIPIN-HCL AL [Concomitant]
     Indication: HYPERTENSION
     Dosage: 2 DF, QD (1-0-1)
     Route: 065

REACTIONS (2)
  - Dysgeusia [Recovered/Resolved]
  - Cardiac failure [Unknown]

NARRATIVE: CASE EVENT DATE: 201902
